FAERS Safety Report 18645903 (Version 1)
Quarter: 2020Q4

REPORT INFORMATION
  Report Type: Report from Study
  Country: GB (occurrence: GB)
  Receive Date: 20201221
  Receipt Date: 20201221
  Transmission Date: 20210114
  Serious: Yes (Other)
  Sender: FDA-Public Use
  Company Number: GB-JNJFOC-20201225810

PATIENT
  Sex: Female

DRUGS (8)
  1. GABAPENTIN. [Concomitant]
     Active Substance: GABAPENTIN
  2. STELARA [Suspect]
     Active Substance: USTEKINUMAB
     Indication: PSORIASIS
     Route: 058
     Dates: start: 2013
  3. CLOZAPINE. [Concomitant]
     Active Substance: CLOZAPINE
     Indication: BLOOD PRESSURE ABNORMAL
  4. METHOTREXATE. [Concomitant]
     Active Substance: METHOTREXATE
  5. STELARA [Suspect]
     Active Substance: USTEKINUMAB
  6. FOLIC ACID. [Concomitant]
     Active Substance: FOLIC ACID
  7. TEMAZEPAM. [Concomitant]
     Active Substance: TEMAZEPAM
  8. BOTOX [Concomitant]
     Active Substance: ONABOTULINUMTOXINA
     Indication: FACIAL SPASM

REACTIONS (3)
  - Dementia [Unknown]
  - Frequent bowel movements [Unknown]
  - Gastrointestinal motility disorder [Unknown]
